FAERS Safety Report 11969989 (Version 1)
Quarter: 2016Q1

REPORT INFORMATION
  Report Type: Spontaneous
  Country: AU (occurrence: AU)
  Receive Date: 20160128
  Receipt Date: 20160128
  Transmission Date: 20160526
  Serious: Yes (Other)
  Sender: FDA-Public Use
  Company Number: AU-APOTEX-2016AP005959

PATIENT
  Sex: Male

DRUGS (10)
  1. ESMOLOL [Suspect]
     Active Substance: ESMOLOL HYDROCHLORIDE
     Indication: NEONATAL TACHYCARDIA
  2. FLECAINIDE [Suspect]
     Active Substance: FLECAINIDE
     Indication: ATRIAL FLUTTER
     Dosage: 4MG/KG/DAY
     Route: 065
  3. SOTALOL. [Suspect]
     Active Substance: SOTALOL
     Indication: ATRIAL FLUTTER
     Dosage: 4.5MG/KG/DAY
     Route: 065
  4. AMIODARONE [Suspect]
     Active Substance: AMIODARONE
     Indication: NEONATAL TACHYCARDIA
  5. DIGOXIN. [Suspect]
     Active Substance: DIGOXIN
     Indication: NEONATAL TACHYCARDIA
  6. SOTALOL. [Suspect]
     Active Substance: SOTALOL
     Indication: NEONATAL TACHYCARDIA
  7. AMIODARONE [Suspect]
     Active Substance: AMIODARONE
     Indication: ATRIAL FLUTTER
     Dosage: 15MCG/KG/MIN
     Route: 042
  8. DIGOXIN. [Suspect]
     Active Substance: DIGOXIN
     Indication: ATRIAL FLUTTER
     Dosage: 8 MCG/KG/DAY
     Route: 048
  9. ESMOLOL [Suspect]
     Active Substance: ESMOLOL HYDROCHLORIDE
     Indication: ATRIAL FLUTTER
     Dosage: UP TO 175MCG/KG/MIN
     Route: 042
  10. FLECAINIDE [Suspect]
     Active Substance: FLECAINIDE
     Indication: NEONATAL TACHYCARDIA

REACTIONS (2)
  - Drug ineffective [Unknown]
  - Treatment failure [Unknown]
